FAERS Safety Report 8718171 (Version 3)
Quarter: 2012Q4

REPORT INFORMATION
  Report Type: 
  Country: GB (occurrence: GB)
  Receive Date: 20120810
  Receipt Date: 20121207
  Transmission Date: 20130627
  Serious: Yes (Other)
  Sender: FDA-Public Use
  Company Number: PHFR2012GB004395

PATIENT
  Age: 32 Year
  Sex: Female

DRUGS (6)
  1. AMOXICILLIN\CLAVULANATE POTASSIUM [Suspect]
     Indication: ANTIBIOTIC PROPHYLAXIS
     Dosage: 1 DF, TID
     Route: 048
     Dates: start: 20120725
  2. CO-DYDRAMOL [Suspect]
     Indication: POSTOPERATIVE ANALGESIA
     Dosage: 1 DF, four times a day
     Route: 048
     Dates: start: 20120725, end: 20120730
  3. DICLOFENAC [Suspect]
     Indication: POSTOPERATIVE ANALGESIA
     Dosage: 50 mg, TID
     Route: 048
     Dates: start: 20120725
  4. FERROUS SULPHATE [Concomitant]
     Indication: ANAEMIA
  5. FLUCLOXACILLIN [Concomitant]
     Indication: ANTIBIOTIC PROPHYLAXIS
  6. PARACETAMOL [Concomitant]
     Indication: POSTOPERATIVE ANALGESIA

REACTIONS (3)
  - Defaecation urgency [Unknown]
  - Constipation [Unknown]
  - Pain [Unknown]
